FAERS Safety Report 25169743 (Version 1)
Quarter: 2025Q2

REPORT INFORMATION
  Report Type: Spontaneous
  Country: GB (occurrence: GB)
  Receive Date: 20250407
  Receipt Date: 20250407
  Transmission Date: 20250717
  Serious: Yes (Hospitalization, Other)
  Sender: ELI LILLY AND CO
  Company Number: GB-MHRA-WEBRADR-202503261104250500-CYLBZ

PATIENT
  Age: 35 Year
  Sex: Female
  Weight: 97 kg

DRUGS (1)
  1. MOUNJARO [Suspect]
     Active Substance: TIRZEPATIDE
     Indication: Weight control
     Route: 058
     Dates: start: 20250218, end: 20250325

REACTIONS (6)
  - Metabolic acidosis [Recovered/Resolved]
  - Hypoglycaemia [Unknown]
  - Starvation ketoacidosis [Unknown]
  - Hypophagia [Unknown]
  - Abdominal discomfort [Unknown]
  - Vomiting [Unknown]

NARRATIVE: CASE EVENT DATE: 20250321
